FAERS Safety Report 8521308-4 (Version None)
Quarter: 2012Q3

REPORT INFORMATION
  Report Type: 
  Country: None (occurrence: None)
  Receive Date: 20120719
  Receipt Date: 20120714
  Transmission Date: 20120928
  Serious: Yes (Life-Threatening)
  Sender: FDA-Public Use
  Company Number: US-CELGENEUS-163-21880-12051335

PATIENT
  Sex: Female

DRUGS (9)
  1. AMOXICILLIN [Concomitant]
     Route: 065
  2. CALCIUM [Concomitant]
     Dosage: 500
     Route: 065
  3. SYNTHROID [Concomitant]
     Route: 065
  4. CO Q 10 [Concomitant]
     Route: 065
  5. REVLIMID [Suspect]
     Indication: MULTIPLE MYELOMA
     Dosage: 15 MILLIGRAM
     Route: 048
     Dates: start: 20101014
  6. VITAMIN D [Concomitant]
     Route: 065
  7. ASPIRIN [Concomitant]
     Route: 065
  8. VITAMIN E BLEND [Concomitant]
     Route: 065
  9. COLOSTRUM [Concomitant]
     Route: 065

REACTIONS (3)
  - OVARIAN CANCER [None]
  - ENDOMETRIAL CANCER [None]
  - FULL BLOOD COUNT DECREASED [None]
